FAERS Safety Report 9847514 (Version 2)
Quarter: 2014Q2

REPORT INFORMATION
  Report Type: Spontaneous
  Country: FR (occurrence: FR)
  Receive Date: 20140128
  Receipt Date: 20140425
  Transmission Date: 20141212
  Serious: Yes (Hospitalization)
  Sender: FDA-Public Use
  Company Number: FR-ROCHE-1339623

PATIENT
  Age: 75 Year
  Sex: Female

DRUGS (5)
  1. LUCENTIS [Suspect]
     Indication: PRODUCT USED FOR UNKNOWN INDICATION
     Route: 050
     Dates: start: 20130502
  2. LUCENTIS [Suspect]
     Route: 050
     Dates: start: 20130627
  3. KARDEGIC [Concomitant]
     Route: 065
  4. BIPRETERAX [Concomitant]
  5. SIMVASTATIN [Concomitant]

REACTIONS (2)
  - Myocardial infarction [Recovered/Resolved with Sequelae]
  - Diarrhoea [Unknown]
